FAERS Safety Report 25958061 (Version 1)
Quarter: 2025Q4

REPORT INFORMATION
  Report Type: Spontaneous
  Country: TR (occurrence: TR)
  Receive Date: 20251024
  Receipt Date: 20251024
  Transmission Date: 20260118
  Serious: Yes (Other)
  Sender: AMGEN
  Company Number: TR-AMGEN-TURSP2025210146

PATIENT

DRUGS (1)
  1. BEVACIZUMAB [Suspect]
     Active Substance: BEVACIZUMAB
     Indication: Peritoneal mesothelioma malignant
     Dosage: UNK
     Route: 065

REACTIONS (2)
  - Peritoneal mesothelioma malignant recurrent [Unknown]
  - Off label use [Unknown]
